FAERS Safety Report 9255988 (Version 1)
Quarter: 2013Q2

REPORT INFORMATION
  Report Type: Spontaneous
  Country: US (occurrence: US)
  Receive Date: 20130425
  Receipt Date: 20130425
  Transmission Date: 20140414
  Serious: No
  Sender: FDA-Public Use
  Company Number: US-B.I. PHARMACEUTICALS,INC./RIDGEFIELD-2013-BI-10772BP

PATIENT
  Age: 70 Year
  Sex: Female
  Weight: 53 kg

DRUGS (4)
  1. MICARDIS [Suspect]
     Indication: HYPERTENSION
     Dosage: 40 MG
     Route: 048
     Dates: start: 20130415
  2. DORZOLAMIDE [Concomitant]
  3. SYNTHROID [Concomitant]
     Dosage: 88 MCG
     Route: 048
  4. LUMIGAN [Concomitant]

REACTIONS (4)
  - Depressed mood [Not Recovered/Not Resolved]
  - Nausea [Not Recovered/Not Resolved]
  - Asthenia [Not Recovered/Not Resolved]
  - Disturbance in attention [Not Recovered/Not Resolved]
